FAERS Safety Report 23331331 (Version 2)
Quarter: 2024Q1

REPORT INFORMATION
  Report Type: Spontaneous
  Country: DE (occurrence: DE)
  Receive Date: 20231222
  Receipt Date: 20240103
  Transmission Date: 20240409
  Serious: Yes (Other)
  Sender: FDA-Public Use
  Company Number: DE-MLMSERVICE-20231213-4722753-1

PATIENT
  Age: 76 Year
  Sex: Male

DRUGS (1)
  1. DOXORUBICIN [Suspect]
     Active Substance: DOXORUBICIN
     Indication: Kaposi^s sarcoma classical type
     Dosage: 5 CYCLES (ADDITIONAL INFORMATION: LIPOSOMAL PEGYLATED), CYCLIC
     Dates: start: 2016

REACTIONS (2)
  - Optic neuritis [Recovered/Resolved]
  - Off label use [Unknown]

NARRATIVE: CASE EVENT DATE: 20160101
